FAERS Safety Report 14201063 (Version 1)
Quarter: 2017Q4

REPORT INFORMATION
  Report Type: Spontaneous
  Country: US (occurrence: US)
  Receive Date: 20171117
  Receipt Date: 20171117
  Transmission Date: 20180321
  Serious: No
  Sender: FDA-Public Use
  Company Number: US-NOVOPROD-564807

PATIENT
  Age: 53 Year
  Sex: Female

DRUGS (1)
  1. NOVOLOG [Suspect]
     Active Substance: INSULIN ASPART
     Indication: TYPE 2 DIABETES MELLITUS
     Dosage: 4 UNITS IF BLOOD SUGAR WAS ABOVE 180MG/DL
     Route: 058
     Dates: end: 201709

REACTIONS (6)
  - Viral infection [Unknown]
  - Hyperhidrosis [Recovered/Resolved]
  - Peripheral swelling [Not Recovered/Not Resolved]
  - Vision blurred [Not Recovered/Not Resolved]
  - Blood glucose increased [Recovered/Resolved]
  - Tremor [Not Recovered/Not Resolved]

NARRATIVE: CASE EVENT DATE: 2017
